FAERS Safety Report 5502507-2 (Version None)
Quarter: 2007Q4

REPORT INFORMATION
  Report Type: 
  Country: None (occurrence: None)
  Receive Date: 20071030
  Receipt Date: 20071026
  Transmission Date: 20080405
  Serious: Yes (Other)
  Sender: FDA-Public Use
  Company Number: CA-ROXANE LABORATORIES, INC-2007-DE-06317GD

PATIENT
  Age: 82 Year
  Sex: Female

DRUGS (8)
  1. MORPHINE [Suspect]
     Indication: PROCEDURAL PAIN
     Route: 037
  2. MORPHINE [Suspect]
  3. TRAMACET [Suspect]
     Indication: PROCEDURAL PAIN
     Dosage: 2 TABLETS PREOPERATIVELY AND THEN 6-HOURLY
     Route: 048
  4. NALOXONE [Suspect]
     Indication: PROCEDURAL PAIN
     Dosage: 0,25 MCG/KG/H
  5. BUPIVACAINE [Concomitant]
     Indication: SPINAL ANAESTHESIA
     Dosage: 1.4 ML OF 0.75%
  6. ROPIVACAINE [Concomitant]
     Dosage: 100 ML OF 0.3%
     Route: 014
  7. KETOROLAC [Concomitant]
     Route: 014
  8. CELEBREX [Concomitant]

REACTIONS (3)
  - CARDIAC FAILURE [None]
  - DIZZINESS [None]
  - HAEMOGLOBIN DECREASED [None]
